FAERS Safety Report 4722399-9 (Version None)
Quarter: 2005Q3

REPORT INFORMATION
  Report Type: 
  Country: None (occurrence: None)
  Receive Date: 20050722
  Receipt Date: 20050401
  Transmission Date: 20060218
  Serious: No
  Sender: FDA-Public Use
  Company Number: US-GLAXOSMITHKLINE-A0552298A

PATIENT
  Age: 69 Year
  Sex: Female

DRUGS (4)
  1. AVANDIA [Suspect]
     Dosage: 8MG PER DAY
     Route: 048
  2. MORPHINE [Concomitant]
  3. DIAVAN [Concomitant]
  4. CELEBREX [Concomitant]

REACTIONS (2)
  - MOBILITY DECREASED [None]
  - MYALGIA [None]
